FAERS Safety Report 4887058-0 (Version None)
Quarter: 2006Q1

REPORT INFORMATION
  Report Type: 
  Country: None (occurrence: None)
  Receive Date: 20060120
  Receipt Date: 20050428
  Transmission Date: 20060701
  Serious: Yes (Hospitalization, Disabling)
  Sender: FDA-Public Use
  Company Number: US-MERCK-0505USA00247

PATIENT
  Age: 39 Year
  Sex: Female
  Weight: 80 kg

DRUGS (7)
  1. VIOXX [Suspect]
     Indication: BACK INJURY
     Route: 048
     Dates: start: 20020101, end: 20040101
  2. CLONIDINE [Concomitant]
     Route: 065
  3. NAPROSYN [Concomitant]
     Route: 065
  4. MOTRIN [Concomitant]
     Route: 065
  5. FLEXERIL [Concomitant]
     Route: 065
  6. VICODIN [Concomitant]
     Route: 065
  7. [THERAPY UNSPECIFIED] [Concomitant]
     Route: 065

REACTIONS (9)
  - ANEURYSM [None]
  - CEREBROVASCULAR ACCIDENT [None]
  - FALL [None]
  - HYDROCEPHALUS [None]
  - HYPERTENSION [None]
  - INTRACRANIAL ANEURYSM [None]
  - POLYTRAUMATISM [None]
  - RUPTURED CEREBRAL ANEURYSM [None]
  - SUBARACHNOID HAEMORRHAGE [None]
